FAERS Safety Report 18243925 (Version 1)
Quarter: 2020Q3

REPORT INFORMATION
  Report Type: Spontaneous
  Country: US (occurrence: US)
  Receive Date: 20200908
  Receipt Date: 20200908
  Transmission Date: 20201103
  Serious: Yes (Other)
  Sender: FDA-Public Use
  Company Number: NVSC2020US244094

PATIENT
  Age: 22 Year
  Sex: Male

DRUGS (3)
  1. EVEROLIMUS. [Suspect]
     Active Substance: EVEROLIMUS
     Indication: GLIOBLASTOMA
     Dosage: 5 MG, QD
     Route: 065
  2. VEMURAFENIB. [Suspect]
     Active Substance: VEMURAFENIB
     Indication: GLIOBLASTOMA
     Dosage: 960 MG, BID INITIALLY
     Route: 065
  3. VEMURAFENIB. [Suspect]
     Active Substance: VEMURAFENIB
     Dosage: REDUCED TO 720 MG, BID
     Route: 065

REACTIONS (3)
  - Glioblastoma [Unknown]
  - Product use in unapproved indication [Unknown]
  - Malignant neoplasm progression [Unknown]
